FAERS Safety Report 6555440-1 (Version None)
Quarter: 2010Q1

REPORT INFORMATION
  Report Type: 
  Country: None (occurrence: None)
  Receive Date: 20100128
  Receipt Date: 20091130
  Transmission Date: 20100710
  Serious: No
  Sender: FDA-Public Use
  Company Number: A0832274A

PATIENT
  Sex: Female

DRUGS (2)
  1. WELLBUTRIN [Suspect]
     Indication: DRUG USE FOR UNKNOWN INDICATION
     Dosage: 300MG SINGLE DOSE
     Route: 048
     Dates: start: 20091101, end: 20091101
  2. NO CONCURRENT MEDICATION [Concomitant]

REACTIONS (3)
  - BURNING SENSATION [None]
  - DYSARTHRIA [None]
  - PHOTOPSIA [None]
